FAERS Safety Report 15036442 (Version 2)
Quarter: 2018Q3

REPORT INFORMATION
  Report Type: Spontaneous
  Country: US (occurrence: US)
  Receive Date: 20180620
  Receipt Date: 20180920
  Transmission Date: 20181010
  Serious: Yes (Hospitalization)
  Sender: FDA-Public Use
  Company Number: US-JNJFOC-20180621167

PATIENT
  Age: 45 Year
  Sex: Male

DRUGS (2)
  1. INVOKANA [Suspect]
     Active Substance: CANAGLIFLOZIN
     Indication: TYPE 2 DIABETES MELLITUS
     Route: 048
     Dates: start: 20141125
  2. INVOKAMET [Suspect]
     Active Substance: CANAGLIFLOZIN\METFORMIN HYDROCHLORIDE
     Indication: TYPE 2 DIABETES MELLITUS
     Dosage: 150/1000
     Route: 048
     Dates: start: 20150429

REACTIONS (6)
  - Cellulitis [Recovering/Resolving]
  - Gangrene [Recovering/Resolving]
  - Wound [Recovering/Resolving]
  - Amputation [Recovering/Resolving]
  - Osteomyelitis acute [Recovering/Resolving]
  - Diabetic foot [Recovering/Resolving]

NARRATIVE: CASE EVENT DATE: 20160212
